FAERS Safety Report 8597649-1 (Version None)
Quarter: 2012Q3

REPORT INFORMATION
  Report Type: 
  Country: None (occurrence: None)
  Receive Date: 20120816
  Receipt Date: 20120809
  Transmission Date: 20120928
  Serious: Yes (Other)
  Sender: FDA-Public Use
  Company Number: US-PFIZER INC-2012195079

PATIENT
  Age: 46 Year
  Sex: Female

DRUGS (13)
  1. NATALIZUMAB [Suspect]
     Dosage: UNK
  2. NEURONTIN [Suspect]
     Dosage: 600 MG, 4X/DAY
  3. OXYCODONE HCL [Suspect]
     Dosage: 15 MG, 4X/DAY
  4. MORPHINE SULFATE [Suspect]
     Dosage: 15 MG, 3X/DAY
  5. METHADONE [Concomitant]
     Dosage: UNK
  6. CLONAZEPAM [Suspect]
     Dosage: 2 MG, DAILY
  7. ST. JOHN'S WORT [Concomitant]
     Dosage: UNK
  8. AVONEX [Suspect]
     Dosage: UNK
     Route: 030
  9. VITAMIN D [Concomitant]
     Dosage: UNK
  10. GUARANA [Concomitant]
     Dosage: UNK
  11. GINKGO BILOBA [Concomitant]
     Dosage: UNK
  12. GLUCOSAMINE SULFATE [Concomitant]
     Dosage: UNK
  13. ZOLOFT [Suspect]
     Dosage: 25 MG, 3X/DAY

REACTIONS (28)
  - FALL [None]
  - PAIN IN EXTREMITY [None]
  - DYSSTASIA [None]
  - IMPAIRED WORK ABILITY [None]
  - GAIT DISTURBANCE [None]
  - HYPOAESTHESIA [None]
  - MUSCULAR WEAKNESS [None]
  - DYSPHEMIA [None]
  - NUCLEAR MAGNETIC RESONANCE IMAGING ABNORMAL [None]
  - COGNITIVE DISORDER [None]
  - ARTHROPATHY [None]
  - NECK PAIN [None]
  - MEMORY IMPAIRMENT [None]
  - BALANCE DISORDER [None]
  - MULTIPLE SCLEROSIS [None]
  - VISION BLURRED [None]
  - MUSCULOSKELETAL PAIN [None]
  - FATIGUE [None]
  - APHASIA [None]
  - SPINAL CORD INJURY [None]
  - TREMOR [None]
  - BOWEL MOVEMENT IRREGULARITY [None]
  - CENTRAL NERVOUS SYSTEM LESION [None]
  - MIDDLE INSOMNIA [None]
  - BACK PAIN [None]
  - DYSGRAPHIA [None]
  - NEUROLOGICAL SYMPTOM [None]
  - CONSTIPATION [None]
